FAERS Safety Report 10550830 (Version 3)
Quarter: 2015Q1

REPORT INFORMATION
  Report Type: Report from Study
  Country: RU (occurrence: RU)
  Receive Date: 20141029
  Receipt Date: 20150207
  Transmission Date: 20150720
  Serious: Yes (Hospitalization)
  Sender: FDA-Public Use
  Company Number: PHHO2014RU014316

PATIENT
  Age: 37 Year
  Sex: Female
  Weight: 79.6 kg

DRUGS (7)
  1. SOM230 [Suspect]
     Active Substance: PASIREOTIDE
     Dosage: 60 MG, EXTENSION PHASE
     Route: 065
     Dates: start: 20090727
  2. GLICLAZIDE [Concomitant]
     Active Substance: GLICLAZIDE
     Indication: HYPERGLYCAEMIA
     Dosage: 60 MG, UNK
     Route: 065
     Dates: start: 20120601
  3. SOM230 [Suspect]
     Active Substance: PASIREOTIDE
     Indication: ACRAL OVERGROWTH
     Dosage: CORE BLINDED PHASE
     Route: 065
     Dates: start: 20080828
  4. METFORMIN [Concomitant]
     Active Substance: METFORMIN HYDROCHLORIDE
     Indication: HYPERGLYCAEMIA
     Dosage: 1500 MG, UNK
     Route: 065
     Dates: start: 20090704
  5. GALVUSMET [Concomitant]
     Indication: HYPERGLYCAEMIA
     Dosage: 50/1000
     Route: 065
     Dates: start: 20140806
  6. SITAGLIPTINUM [Concomitant]
     Indication: HYPERGLYCAEMIA
     Dosage: 100 MG, UNK
     Route: 065
     Dates: start: 20130207, end: 20130603
  7. SITAGLIPTINUM [Concomitant]
     Dosage: 100 UNK, UNK
     Route: 065
     Dates: start: 20131122

REACTIONS (1)
  - Cholecystitis acute [Recovering/Resolving]

NARRATIVE: CASE EVENT DATE: 20141018
